FAERS Safety Report 13645003 (Version 1)
Quarter: 2017Q2

REPORT INFORMATION
  Report Type: Spontaneous
  Country: US (occurrence: US)
  Receive Date: 20170612
  Receipt Date: 20170612
  Transmission Date: 20170830
  Serious: No
  Sender: FDA-Public Use
  Company Number: US-ROCHE-1272309

PATIENT
  Sex: Female

DRUGS (2)
  1. OXALIPLATIN. [Concomitant]
     Active Substance: OXALIPLATIN
  2. XELODA [Suspect]
     Active Substance: CAPECITABINE
     Indication: COLON CANCER
     Dosage: TWO IN THE MORNING AND TWO AT NIGHT
     Route: 048
     Dates: start: 20130718

REACTIONS (3)
  - Hypoaesthesia [Unknown]
  - Fatigue [Unknown]
  - Paraesthesia [Unknown]
